FAERS Safety Report 10991572 (Version 4)
Quarter: 2015Q3

REPORT INFORMATION
  Report Type: Spontaneous
  Country: JP (occurrence: JP)
  Receive Date: 20150406
  Receipt Date: 20150814
  Transmission Date: 20151125
  Serious: Yes (Other)
  Sender: FDA-Public Use
  Company Number: JP-JNJFOC-20150323202

PATIENT
  Age: 87 Year
  Sex: Male
  Weight: 55 kg

DRUGS (13)
  1. WARFARIN POTASSIUM [Concomitant]
     Active Substance: WARFARIN POTASSIUM
     Indication: ATRIAL FIBRILLATION
     Route: 048
  2. AMLODIN [Concomitant]
     Active Substance: AMLODIPINE BESYLATE
     Indication: HYPERTENSION
     Route: 048
  3. PREDONINE [Concomitant]
     Active Substance: PREDNISOLONE\PREDNISOLONE ACETATE\PREDNISOLONE SODIUM SUCCINATE
     Indication: PROSTATE CANCER METASTATIC
     Route: 048
     Dates: start: 20140303
  4. CALCIUM LACTATE [Concomitant]
     Active Substance: CALCIUM LACTATE
     Indication: HYPOCALCAEMIA
     Route: 048
  5. FLUITRAN [Suspect]
     Active Substance: TRICHLORMETHIAZIDE
     Indication: CARDIAC FAILURE CHRONIC
     Route: 048
     Dates: end: 20141025
  6. DENOTAS CHEWABLE [Suspect]
     Active Substance: CALCIUM CARBONATE\CHOLECALCIFEROL\MAGNESIUM CARBONATE
     Indication: HYPOCALCAEMIA
     Route: 048
     Dates: end: 20141023
  7. FEBURIC [Concomitant]
     Active Substance: FEBUXOSTAT
     Indication: HYPERURICAEMIA
     Route: 048
  8. DIART [Suspect]
     Active Substance: AZOSEMIDE
     Indication: CARDIAC FAILURE CHRONIC
     Route: 048
     Dates: end: 20141025
  9. URSO [Suspect]
     Active Substance: URSODIOL
     Indication: LIVER DISORDER
     Route: 048
     Dates: end: 20141023
  10. ZYTIGA [Suspect]
     Active Substance: ABIRATERONE ACETATE
     Indication: PROSTATE CANCER METASTATIC
     Route: 048
     Dates: start: 20141027
  11. TAKEPRON [Concomitant]
     Active Substance: LANSOPRAZOLE
     Indication: GASTROOESOPHAGEAL REFLUX DISEASE
     Route: 048
  12. ZYTIGA [Suspect]
     Active Substance: ABIRATERONE ACETATE
     Indication: PROSTATE CANCER METASTATIC
     Route: 048
     Dates: start: 20141020, end: 20141023
  13. OLMETEC [Suspect]
     Active Substance: OLMESARTAN MEDOXOMIL
     Indication: HYPERTENSION
     Route: 048

REACTIONS (2)
  - Renal impairment [Recovered/Resolved]
  - Dehydration [Recovered/Resolved]

NARRATIVE: CASE EVENT DATE: 20141023
